FAERS Safety Report 21402897 (Version 1)
Quarter: 2022Q4

REPORT INFORMATION
  Report Type: Report from Study
  Country: CL (occurrence: CL)
  Receive Date: 20221003
  Receipt Date: 20221003
  Transmission Date: 20230113
  Serious: Yes (Death, Hospitalization, Other)
  Sender: FDA-Public Use
  Company Number: CL-BRISTOL-MYERS SQUIBB COMPANY-2022-098366

PATIENT
  Age: 71 Year
  Sex: Female

DRUGS (1)
  1. ORENCIA [Suspect]
     Active Substance: ABATACEPT
     Indication: Rheumatoid arthritis
     Dosage: 125 MG, 4 UNITS, 7
     Route: 058
     Dates: start: 20120612, end: 20220311

REACTIONS (2)
  - Pneumonia [Fatal]
  - Pulmonary fibrosis [Fatal]

NARRATIVE: CASE EVENT DATE: 20220308
